FAERS Safety Report 8180567-0 (Version None)
Quarter: 2012Q1

REPORT INFORMATION
  Report Type: 
  Country: None (occurrence: None)
  Receive Date: 20120302
  Receipt Date: 20120229
  Transmission Date: 20120608
  Serious: Yes (Other)
  Sender: FDA-Public Use
  Company Number: US-PFIZER INC-2012055712

PATIENT
  Sex: Female
  Weight: 73 kg

DRUGS (5)
  1. SYNTHROID [Concomitant]
     Indication: THYROID DISORDER
     Dosage: 0.112 UG, DAILY
  2. GABAPENTIN [Suspect]
     Dosage: UNK, 3X/DAY
  3. PRADAXA [Concomitant]
     Indication: CARDIAC DISORDER
     Dosage: 150 MG, 2X/DAY
     Dates: start: 20110101
  4. METOPROLOL TARTRATE [Concomitant]
     Indication: CARDIAC DISORDER
     Dosage: 50 MG, 2X/DAY
     Dates: start: 20110101
  5. GABAPENTIN [Suspect]
     Indication: SCIATICA
     Dosage: UNK
     Dates: start: 20110101

REACTIONS (3)
  - DYSKINESIA [None]
  - INSOMNIA [None]
  - SCIATICA [None]
